FAERS Safety Report 4829327-6 (Version None)
Quarter: 2005Q4

REPORT INFORMATION
  Report Type: 
  Country: None (occurrence: None)
  Receive Date: 20051115
  Receipt Date: 20051115
  Transmission Date: 20060501
  Serious: Yes (Other)
  Sender: FDA-Public Use
  Company Number: None

PATIENT
  Age: 78 Year
  Sex: Female

DRUGS (5)
  1. FORTEO [Suspect]
     Indication: OSTEOPOROSIS
     Dosage: 20MCG  QD   SQ
     Route: 058
     Dates: start: 20050201, end: 20051110
  2. TOBREX [Concomitant]
  3. LEVOXYL [Concomitant]
  4. PRED FORTE [Concomitant]
  5. PROCARDI XL [Concomitant]

REACTIONS (2)
  - MOBILITY DECREASED [None]
  - MUSCULAR WEAKNESS [None]
